FAERS Safety Report 20124415 (Version 1)
Quarter: 2021Q4

REPORT INFORMATION
  Report Type: Spontaneous
  Country: US (occurrence: US)
  Receive Date: 20211129
  Receipt Date: 20211129
  Transmission Date: 20220303
  Serious: Yes (Hospitalization, Disabling, Other)
  Sender: FDA-Public Use
  Company Number: US-TEVA-2021-US-1980350

PATIENT
  Sex: Male

DRUGS (4)
  1. MORPHINE [Suspect]
     Active Substance: MORPHINE
     Route: 064
  2. UNSPECIFIED INGREDIENT [Suspect]
     Active Substance: UNSPECIFIED INGREDIENT
     Route: 064
  3. HYDROMORPHONE [Suspect]
     Active Substance: HYDROMORPHONE
     Route: 064
  4. SUBUTEX [Suspect]
     Active Substance: BUPRENORPHINE HYDROCHLORIDE
     Route: 064

REACTIONS (12)
  - Drug withdrawal syndrome neonatal [Unknown]
  - Disability [Not Recovered/Not Resolved]
  - Mental disorder [Unknown]
  - General physical health deterioration [Unknown]
  - Drug screen positive [Unknown]
  - Pain [Unknown]
  - Crying [Unknown]
  - Selective eating disorder [Unknown]
  - Tremor [Unknown]
  - Neonatal respiratory distress [Unknown]
  - Drug dependence [Unknown]
  - Foetal exposure during pregnancy [Unknown]
